FAERS Safety Report 13313504 (Version 5)
Quarter: 2018Q4

REPORT INFORMATION
  Report Type: Spontaneous
  Country: US (occurrence: US)
  Receive Date: 20170309
  Receipt Date: 20181102
  Transmission Date: 20190204
  Serious: Yes (Other)
  Sender: FDA-Public Use
  Company Number: US-PFIZER INC-2017093951

PATIENT
  Age: 67 Year
  Sex: Male
  Weight: 109.3 kg

DRUGS (2)
  1. VANCOMYCIN HCL [Suspect]
     Active Substance: VANCOMYCIN HYDROCHLORIDE
     Indication: SOFT TISSUE INFECTION
     Dosage: UNK
     Route: 042
     Dates: start: 20170226, end: 20170228
  2. VANCOMYCIN HCL [Suspect]
     Active Substance: VANCOMYCIN HYDROCHLORIDE
     Indication: SKIN INFECTION
     Dosage: UNK
     Route: 042

REACTIONS (3)
  - Crystal urine present [Unknown]
  - Acute kidney injury [Unknown]
  - Product deposit [Unknown]

NARRATIVE: CASE EVENT DATE: 20170228
